FAERS Safety Report 5852211-6 (Version None)
Quarter: 2008Q3

REPORT INFORMATION
  Report Type: 
  Country: None (occurrence: None)
  Receive Date: 20080821
  Receipt Date: 20080821
  Transmission Date: 20090109
  Serious: Yes (Death)
  Sender: FDA-Public Use
  Company Number: None

PATIENT
  Age: 56 Year
  Sex: Male
  Weight: 76.2 kg

DRUGS (2)
  1. HEPARIN SODIUM 25,000 UNITS AND DEXTROSE 5% [Suspect]
     Indication: CEREBROVASCULAR ACCIDENT
     Dosage: 1000 UNITS PER HOUR IV DRIP
     Route: 041
  2. CLOPIDOGREL [Suspect]
     Indication: CORONARY ARTERIAL STENT INSERTION
     Dosage: 75 MG DAILY PO
     Route: 048
     Dates: start: 20080701, end: 20080819

REACTIONS (1)
  - HAEMORRHAGIC TRANSFORMATION STROKE [None]
